APPROVED DRUG PRODUCT: TRAZODONE HYDROCHLORIDE
Active Ingredient: TRAZODONE HYDROCHLORIDE
Strength: 50MG
Dosage Form/Route: TABLET;ORAL
Application: A090514 | Product #001
Applicant: PHARMOBEDIENT CONSULTING LLC
Approved: Jun 2, 2009 | RLD: No | RS: No | Type: DISCN